FAERS Safety Report 21465462 (Version 3)
Quarter: 2022Q4

REPORT INFORMATION
  Report Type: Spontaneous
  Country: US (occurrence: US)
  Receive Date: 20221017
  Receipt Date: 20221025
  Transmission Date: 20230112
  Serious: Yes (Death)
  Sender: FDA-Public Use
  Company Number: US-MYLANLABS-2022M1112773

PATIENT
  Age: 28 Year
  Sex: Female

DRUGS (5)
  1. FENTANYL CITRATE [Suspect]
     Active Substance: FENTANYL CITRATE
     Dosage: UNK
     Route: 065
  2. DIPHENHYDRAMINE HYDROCHLORIDE [Suspect]
     Active Substance: DIPHENHYDRAMINE HYDROCHLORIDE
     Dosage: UNK
     Route: 065
  3. ALPRAZOLAM [Suspect]
     Active Substance: ALPRAZOLAM
     Dosage: UNK
     Route: 065
  4. HEROIN [Suspect]
     Active Substance: DIAMORPHINE
     Dosage: UNK
     Route: 065
  5. COCAINE [Suspect]
     Active Substance: COCAINE
     Dosage: UNK
     Route: 065

REACTIONS (2)
  - Overdose [Fatal]
  - Toxicity to various agents [Fatal]
